APPROVED DRUG PRODUCT: TREANDA
Active Ingredient: BENDAMUSTINE HYDROCHLORIDE
Strength: 180MG/2ML (90MG/ML)
Dosage Form/Route: SOLUTION;INTRAVENOUS
Application: N022249 | Product #004
Applicant: CEPHALON INC
Approved: Sep 13, 2013 | RLD: Yes | RS: No | Type: DISCN

PATENTS:
Patent 8344006 | Expires: Sep 23, 2029
Patent 8445524 | Expires: Mar 26, 2029
Patent 8791270*PED | Expires: Jul 12, 2026
Patent 8445524*PED | Expires: Sep 26, 2029
Patent 8344006*PED | Expires: Mar 23, 2030
Patent 8791270 | Expires: Jan 12, 2026